FAERS Safety Report 9671869 (Version 1)
Quarter: 2013Q4

REPORT INFORMATION
  Report Type: Spontaneous
  Country: US (occurrence: US)
  Receive Date: 20131106
  Receipt Date: 20131106
  Transmission Date: 20140711
  Serious: No
  Sender: FDA-Public Use
  Company Number: US-009507513-1311USA000857

PATIENT
  Age: 28 Year
  Sex: Male

DRUGS (4)
  1. CELESTONE SOLUSPAN [Suspect]
     Indication: HYPERSENSITIVITY
     Dosage: ONLY ONE INJECTION, ONCE
     Route: 030
     Dates: start: 20131029
  2. CELESTONE SOLUSPAN [Suspect]
     Indication: CHEST PAIN
  3. HYDROXYZINE [Concomitant]
  4. KLONOPIN [Concomitant]

REACTIONS (3)
  - Anxiety [Not Recovered/Not Resolved]
  - Depression [Not Recovered/Not Resolved]
  - Headache [Not Recovered/Not Resolved]
